FAERS Safety Report 20365429 (Version 2)
Quarter: 2022Q1

REPORT INFORMATION
  Report Type: Other
  Country: US (occurrence: None)
  Receive Date: 20220122
  Receipt Date: 20220221
  Transmission Date: 20220424
  Serious: Yes (Death)
  Sender: FDA-Public Use
  Company Number: US-ROCHE-3005065

PATIENT
  Sex: Female

DRUGS (9)
  1. LUCENTIS [Suspect]
     Active Substance: RANIBIZUMAB
     Indication: Type 1 diabetes mellitus
     Dosage: INJECT 0.3MG VIA INTRAVITREAL ADMINISTRATION INTO RIGHT EYE EVERY  06 WEEK FOR ONE YEAR
     Route: 050
  2. LUCENTIS [Suspect]
     Active Substance: RANIBIZUMAB
  3. LUCENTIS [Suspect]
     Active Substance: RANIBIZUMAB
  4. LUCENTIS [Suspect]
     Active Substance: RANIBIZUMAB
     Indication: Diabetic retinopathy
  5. LUCENTIS [Suspect]
     Active Substance: RANIBIZUMAB
  6. LUCENTIS [Suspect]
     Active Substance: RANIBIZUMAB
  7. LUCENTIS [Suspect]
     Active Substance: RANIBIZUMAB
     Indication: Macular oedema
  8. LUCENTIS [Suspect]
     Active Substance: RANIBIZUMAB
  9. LUCENTIS [Suspect]
     Active Substance: RANIBIZUMAB

REACTIONS (1)
  - Death [Fatal]
